FAERS Safety Report 4371359-9 (Version None)
Quarter: 2004Q2

REPORT INFORMATION
  Report Type: 
  Country: None (occurrence: None)
  Receive Date: 20040601
  Receipt Date: 20040514
  Transmission Date: 20050107
  Serious: Yes (Hospitalization)
  Sender: FDA-Public Use
  Company Number: 194829

PATIENT
  Age: 59 Year
  Sex: Female
  Weight: 99.7913 kg

DRUGS (4)
  1. AVONEX [Suspect]
     Indication: MULTIPLE SCLEROSIS
     Dosage: 30 MCG QW; IM
     Route: 030
     Dates: start: 19991101, end: 20030101
  2. SYNTHROID [Concomitant]
  3. GABAPENTIN [Concomitant]
  4. BACLOFEN [Concomitant]

REACTIONS (10)
  - BLOOD PRESSURE DECREASED [None]
  - CARDIAC ARREST [None]
  - HYPOTENSION [None]
  - LUMBAR SPINAL STENOSIS [None]
  - MULTIPLE ALLERGIES [None]
  - OSTEOMYELITIS [None]
  - POST PROCEDURAL COMPLICATION [None]
  - SEPTIC SHOCK [None]
  - SPINAL OSTEOARTHRITIS [None]
  - STAPHYLOCOCCAL INFECTION [None]
